FAERS Safety Report 20115348 (Version 1)
Quarter: 2021Q4

REPORT INFORMATION
  Report Type: Spontaneous
  Country: US (occurrence: US)
  Receive Date: 20211125
  Receipt Date: 20211125
  Transmission Date: 20220303
  Serious: Yes (Death)
  Sender: FDA-Public Use
  Company Number: US-UCBSA-2021054200

PATIENT

DRUGS (2)
  1. NAYZILAM [Suspect]
     Active Substance: MIDAZOLAM
     Indication: Pancreatic carcinoma
     Dosage: UNK
  2. NAYZILAM [Suspect]
     Active Substance: MIDAZOLAM
     Indication: Off label use

REACTIONS (3)
  - Death [Fatal]
  - Off label use [Unknown]
  - Drug ineffective [Unknown]
